FAERS Safety Report 16861518 (Version 1)
Quarter: 2019Q3

REPORT INFORMATION
  Report Type: Spontaneous
  Country: BR (occurrence: BR)
  Receive Date: 20190927
  Receipt Date: 20190927
  Transmission Date: 20191005
  Serious: Yes (Other)
  Sender: FDA-Public Use
  Company Number: PHHY2019BR221511

PATIENT
  Sex: Female
  Weight: 77 kg

DRUGS (4)
  1. SANDOSTATIN LAR DEPOT [Suspect]
     Active Substance: OCTREOTIDE ACETATE
     Indication: BLOOD GROWTH HORMONE DECREASED
     Dosage: 1 DF, QMO (30 MG)
     Route: 030
     Dates: start: 2011
  2. ENALAPRIL [Suspect]
     Active Substance: ENALAPRIL
     Indication: CHEST PAIN
     Dosage: 1 DF, QD (10 MG)
     Route: 048
     Dates: start: 2011
  3. CITALOPRAM [Suspect]
     Active Substance: CITALOPRAM HYDROBROMIDE
     Indication: DEPRESSION
     Dosage: 1 DF, QD (20 MG)
     Route: 048
     Dates: start: 2003
  4. SINVASTATINA [Suspect]
     Active Substance: SIMVASTATIN
     Indication: BLOOD CHOLESTEROL ABNORMAL
     Dosage: 1 DF, QD (20 MG)
     Route: 048
     Dates: start: 2009

REACTIONS (14)
  - Gastric disorder [Unknown]
  - Blood growth hormone abnormal [Unknown]
  - Product use issue [Unknown]
  - Injection site pain [Unknown]
  - Confusional state [Not Recovered/Not Resolved]
  - Memory impairment [Not Recovered/Not Resolved]
  - Thyroid disorder [Unknown]
  - Blood cholesterol abnormal [Unknown]
  - Spinal pain [Not Recovered/Not Resolved]
  - Chest pain [Unknown]
  - Hypersensitivity [Unknown]
  - Product use in unapproved indication [Unknown]
  - Pruritus [Not Recovered/Not Resolved]
  - Injection site mass [Unknown]

NARRATIVE: CASE EVENT DATE: 2009
